FAERS Safety Report 8766993 (Version 1)
Quarter: 2012Q4

REPORT INFORMATION
  Report Type: 
  Country: US (occurrence: US)
  Receive Date: 20120904
  Receipt Date: 20120904
  Transmission Date: 20130627
  Serious: Yes (Other)
  Sender: FDA-Public Use
  Company Number: PHEH2012US017038

PATIENT
  Sex: Female

DRUGS (1)
  1. GILENYA [Suspect]
     Indication: MULTIPLE SCLEROSIS
     Dosage: 0.5 mg, QD
     Route: 048
     Dates: start: 20110621

REACTIONS (7)
  - Rash erythematous [Unknown]
  - Skin discolouration [Unknown]
  - Wound secretion [None]
  - Sunburn [Recovered/Resolved]
  - Nail infection [Unknown]
  - Rash [None]
  - Rash [None]
